FAERS Safety Report 6504941-0 (Version None)
Quarter: 2009Q4

REPORT INFORMATION
  Report Type: 
  Country: None (occurrence: None)
  Receive Date: 20091218
  Receipt Date: 20091213
  Transmission Date: 20100525
  Serious: Yes (Hospitalization, Other)
  Sender: FDA-Public Use
  Company Number: NL-ROCHE-674630

PATIENT
  Age: 4 Year
  Sex: Female

DRUGS (2)
  1. CELLCEPT [Suspect]
     Route: 048
     Dates: start: 20090801
  2. PREDNISOLONE [Suspect]
     Route: 048
     Dates: start: 20090801

REACTIONS (3)
  - CEREBRAL HAEMORRHAGE [None]
  - EPISTAXIS [None]
  - HAEMORRHAGE SUBCUTANEOUS [None]
